FAERS Safety Report 6759529-3 (Version None)
Quarter: 2010Q2

REPORT INFORMATION
  Report Type: 
  Country: None (occurrence: None)
  Receive Date: 20100603
  Receipt Date: 20100518
  Transmission Date: 20101027
  Serious: Yes (Hospitalization, Other)
  Sender: FDA-Public Use
  Company Number: NO-SOLVAY-00310002259

PATIENT
  Age: 68 Year
  Sex: Female

DRUGS (4)
  1. FLUVOXAMINE MALEATE [Suspect]
     Indication: DEPRESSION
     Dosage: 100 MILLIGRAM(S) ORAL
     Route: 048
     Dates: start: 20080901, end: 20081231
  2. OXAZEPAM [Concomitant]
  3. MELATONIN (MELATONIN) [Concomitant]
  4. APODORM (NITRAZEPAM) [Concomitant]

REACTIONS (4)
  - ANXIETY [None]
  - CIRCADIAN RHYTHM SLEEP DISORDER [None]
  - DELUSION [None]
  - RESTLESSNESS [None]
